FAERS Safety Report 15431108 (Version 1)
Quarter: 2018Q3

REPORT INFORMATION
  Report Type: Report from Study
  Country: CR (occurrence: CR)
  Receive Date: 20180926
  Receipt Date: 20180926
  Transmission Date: 20181010
  Serious: Yes (Life-Threatening)
  Sender: FDA-Public Use
  Company Number: CR-GLAXOSMITHKLINE-CR2015187223

PATIENT
  Sex: Male
  Weight: 77.98 kg

DRUGS (8)
  1. TASIGNA [Suspect]
     Active Substance: NILOTINIB
     Dosage: 4 DF (200 MG), QD
     Route: 048
  2. ASPIRINE [Concomitant]
     Active Substance: ASPIRIN
     Indication: PRODUCT USED FOR UNKNOWN INDICATION
     Dosage: 1 DF, QD
     Route: 048
  3. DICLOFENAC [Suspect]
     Active Substance: DICLOFENAC
     Indication: PRODUCT USED FOR UNKNOWN INDICATION
     Dosage: 1 DF, QD
     Route: 048
  4. GLIVEC [Suspect]
     Active Substance: IMATINIB MESYLATE
     Indication: PRODUCT USED FOR UNKNOWN INDICATION
     Dosage: UNK
     Route: 065
     Dates: start: 201004
  5. TASIGNA [Suspect]
     Active Substance: NILOTINIB
     Dosage: 400 MG, BID
     Route: 048
  6. TASIGNA [Suspect]
     Active Substance: NILOTINIB
     Dosage: 800 MG, QD (2 AT 10 AM AND 2 AT 10 PM)
     Route: 065
  7. TASIGNA [Suspect]
     Active Substance: NILOTINIB
     Indication: CHRONIC MYELOID LEUKAEMIA
     Dosage: 800 MG, QD (10 AM AND AT 3 PM)
     Route: 048
     Dates: start: 2014
  8. HYDROXYUREA. [Suspect]
     Active Substance: HYDROXYUREA
     Indication: PRODUCT USED FOR UNKNOWN INDICATION
     Dosage: 2 DF, BID
     Route: 065

REACTIONS (21)
  - Full blood count abnormal [Recovering/Resolving]
  - Blister [Recovered/Resolved]
  - Abdominal discomfort [Recovering/Resolving]
  - Drug prescribing error [Unknown]
  - Visual impairment [Recovering/Resolving]
  - Rash [Unknown]
  - Abdominal pain upper [Not Recovered/Not Resolved]
  - Malaise [Unknown]
  - Platelet count decreased [Unknown]
  - Treatment failure [Unknown]
  - Constipation [Not Recovered/Not Resolved]
  - Full blood count decreased [Unknown]
  - Gene mutation [Unknown]
  - Eye irritation [Unknown]
  - Polymerase chain reaction positive [Unknown]
  - Nasopharyngitis [Unknown]
  - Hyperchlorhydria [Unknown]
  - Abdominal pain [Unknown]
  - Cough [Not Recovered/Not Resolved]
  - Incorrect drug administration duration [Unknown]
  - Fatigue [Not Recovered/Not Resolved]
